FAERS Safety Report 10677545 (Version 4)
Quarter: 2015Q1

REPORT INFORMATION
  Report Type: Spontaneous
  Country: IE (occurrence: IE)
  Receive Date: 20141228
  Receipt Date: 20150129
  Transmission Date: 20150720
  Serious: Yes (Other)
  Sender: FDA-Public Use
  Company Number: IE-AMGEN-IRLSP2014099883

PATIENT
  Age: 73 Year
  Sex: Female

DRUGS (4)
  1. FRUSEMIDE                          /00032601/ [Concomitant]
     Active Substance: FUROSEMIDE
     Dosage: UNK
     Dates: start: 2014
  2. CIPROXIN                           /00697201/ [Concomitant]
     Dosage: UNK
     Dates: start: 20141215
  3. ENBREL [Suspect]
     Active Substance: ETANERCEPT
     Indication: PSORIATIC ARTHROPATHY
     Dosage: 50 MG, WEEKLY
     Route: 058
     Dates: start: 20141128
  4. GALVUS [Concomitant]
     Active Substance: VILDAGLIPTIN
     Dosage: UNK

REACTIONS (6)
  - Back pain [Unknown]
  - Injection site rash [Recovering/Resolving]
  - Malaise [Unknown]
  - Kidney infection [Unknown]
  - Rash papular [Not Recovered/Not Resolved]
  - Rash pruritic [Not Recovered/Not Resolved]

NARRATIVE: CASE EVENT DATE: 20141214
